FAERS Safety Report 6707693-4 (Version None)
Quarter: 2010Q2

REPORT INFORMATION
  Report Type: 
  Country: None (occurrence: None)
  Receive Date: 20100503
  Receipt Date: 20090504
  Transmission Date: 20101027
  Serious: No
  Sender: FDA-Public Use
  Company Number: US-ASTRAZENECA-2009UW11240

PATIENT
  Age: 76 Year
  Sex: Female
  Weight: 66.2 kg

DRUGS (1)
  1. NEXIUM [Suspect]
     Indication: GASTRIC DISORDER
     Route: 048
     Dates: start: 20090501

REACTIONS (1)
  - FAECES DISCOLOURED [None]
